FAERS Safety Report 19514673 (Version 1)
Quarter: 2021Q3

REPORT INFORMATION
  Report Type: Report from Study
  Country: MX (occurrence: MX)
  Receive Date: 20210709
  Receipt Date: 20210709
  Transmission Date: 20211014
  Serious: Yes (Other)
  Sender: FDA-Public Use
  Company Number: MX-SA-2021SA226227

PATIENT
  Age: 47 Year
  Sex: Male

DRUGS (1)
  1. DUPILUMAB [Suspect]
     Active Substance: DUPILUMAB
     Route: 058
     Dates: start: 20210616

REACTIONS (4)
  - Intentional product misuse [Unknown]
  - Arrhythmia [Unknown]
  - Hyperglycaemia [Unknown]
  - Therapy cessation [Unknown]
